FAERS Safety Report 8978974 (Version 12)
Quarter: 2014Q3

REPORT INFORMATION
  Report Type: Spontaneous
  Country: JP (occurrence: JP)
  Receive Date: 20121220
  Receipt Date: 20140702
  Transmission Date: 20150326
  Serious: Yes (Hospitalization, Other)
  Sender: FDA-Public Use
  Company Number: JP-CELGENEUS-087-21880-12121862

PATIENT
  Age: 76 Year
  Sex: Male
  Weight: 58.4 kg

DRUGS (63)
  1. REVLIMID [Suspect]
     Active Substance: LENALIDOMIDE
     Indication: PLASMA CELL MYELOMA
     Dosage: 25 MILLIGRAM
     Route: 048
     Dates: start: 20111222
  2. FELBINAC [Concomitant]
     Active Substance: FELBINAC
     Indication: PRODUCT USED FOR UNKNOWN INDICATION
     Route: 065
     Dates: start: 20111216, end: 20111216
  3. HEPARIN [Concomitant]
     Active Substance: HEPARIN SODIUM
     Indication: PRODUCT USED FOR UNKNOWN INDICATION
     Route: 065
     Dates: start: 20111220, end: 20120331
  4. SENNA LEAF [Concomitant]
     Active Substance: SENNA LEAF
     Route: 065
     Dates: start: 20120601, end: 20130102
  5. SENNA LEAF [Concomitant]
     Active Substance: SENNA LEAF
     Route: 065
     Dates: start: 20130122, end: 20130329
  6. SODIUM PICOSULFATE HYDRATE [Concomitant]
     Route: 065
     Dates: start: 20120106, end: 20120525
  7. ASPIRIN. [Concomitant]
     Active Substance: ASPIRIN
     Route: 065
     Dates: start: 20130117, end: 20130606
  8. PL GRANULE [Concomitant]
     Route: 065
     Dates: start: 20120910, end: 20120919
  9. PL GRANULE [Concomitant]
     Route: 065
     Dates: start: 20121101, end: 20121107
  10. BIOFERMIN-R [Concomitant]
     Route: 065
     Dates: start: 20130404, end: 20130411
  11. METOCLOPRAMIDE. [Concomitant]
     Active Substance: METOCLOPRAMIDE
     Route: 065
     Dates: start: 20121215, end: 20121215
  12. FILGRASTIM [Concomitant]
     Active Substance: FILGRASTIM
     Indication: ADVERSE EVENT
     Route: 065
     Dates: start: 20130103, end: 20130106
  13. CEFEPIME [Concomitant]
     Active Substance: CEFEPIME\CEFEPIME HYDROCHLORIDE
     Indication: ADVERSE EVENT
     Dosage: 2 GRAM
     Route: 065
     Dates: start: 20130103, end: 20130107
  14. LEVOFLOXACIN HEMIHYDRATE [Concomitant]
     Active Substance: LEVOFLOXACIN
     Indication: ADVERSE EVENT
     Route: 065
     Dates: start: 20130104, end: 20130116
  15. LOXOPROFEN SODIUM HYDRATE [Concomitant]
     Active Substance: LOXOPROFEN SODIUM DIHYDRATE
     Route: 065
     Dates: start: 20130829, end: 20130918
  16. V ROHTO [Concomitant]
     Indication: EYE DISCHARGE
  17. SENNA LEAF [Concomitant]
     Active Substance: SENNA LEAF
     Route: 065
     Dates: start: 20120104, end: 20120525
  18. PL GRANULE [Concomitant]
     Indication: ADVERSE EVENT
     Route: 065
     Dates: start: 20120713, end: 20120724
  19. BIOFERMIN-R [Concomitant]
     Indication: ADVERSE EVENT
     Route: 065
     Dates: start: 20121101, end: 20121107
  20. METOCLOPRAMIDE. [Concomitant]
     Active Substance: METOCLOPRAMIDE
     Route: 065
     Dates: start: 20130614, end: 20130614
  21. LEVOFLOXACIN HEMIHYDRATE [Concomitant]
     Active Substance: LEVOFLOXACIN
     Route: 065
     Dates: start: 20130822, end: 20130828
  22. L-CARBOCISTEINE [Concomitant]
     Active Substance: CARBOCYSTEINE
     Indication: ADVERSE EVENT
     Route: 065
     Dates: start: 20120913, end: 20120919
  23. VANCOMYCIN HYDROCHLORIDE. [Concomitant]
     Active Substance: VANCOMYCIN HYDROCHLORIDE
     Indication: ADVERSE EVENT
     Dosage: 1 GRAM
     Route: 041
     Dates: start: 20130104, end: 20130107
  24. LIRANAFTATE [Concomitant]
     Indication: ADVERSE EVENT
     Route: 065
     Dates: start: 20130531, end: 20130711
  25. TULOBUTEROL [Concomitant]
     Active Substance: TULOBUTEROL
     Indication: ADVERSE EVENT
     Route: 065
     Dates: start: 20130822, end: 20130829
  26. HERBAL NOS [Concomitant]
     Active Substance: HERBALS
     Indication: ADVERSE EVENT
     Route: 065
     Dates: start: 20130830, end: 20130906
  27. LACTATED RINGERS [Concomitant]
     Active Substance: CALCIUM CHLORIDE\POTASSIUM CHLORIDE\SODIUM CHLORIDE\SODIUM LACTATE
     Indication: PRODUCT USED FOR UNKNOWN INDICATION
     Route: 065
     Dates: start: 20130103, end: 20130107
  28. OXYGEN. [Concomitant]
     Active Substance: OXYGEN
     Indication: PRODUCT USED FOR UNKNOWN INDICATION
     Route: 065
     Dates: start: 20130103, end: 20130104
  29. LENADEX [Suspect]
     Active Substance: DEXAMETHASONE ACETATE
     Indication: PLASMA CELL MYELOMA
     Dosage: 28 MILLIGRAM
     Route: 048
     Dates: start: 20111222
  30. DEXAMETHASONE. [Suspect]
     Active Substance: DEXAMETHASONE
     Route: 041
     Dates: start: 20121220
  31. ELOTUZUMAB [Suspect]
     Active Substance: ELOTUZUMAB
     Dosage: 10 MILLIGRAM/SQ. METER
     Route: 041
  32. SENNA LEAF [Concomitant]
     Active Substance: SENNA LEAF
     Route: 065
     Dates: start: 20130403, end: 20140330
  33. SODIUM PICOSULFATE HYDRATE [Concomitant]
     Indication: ADVERSE EVENT
     Route: 065
     Dates: start: 20111230, end: 20111230
  34. METOCLOPRAMIDE. [Concomitant]
     Active Substance: METOCLOPRAMIDE
     Indication: PRODUCT USED FOR UNKNOWN INDICATION
     Route: 065
     Dates: start: 20121207, end: 20121207
  35. METOCLOPRAMIDE. [Concomitant]
     Active Substance: METOCLOPRAMIDE
     Route: 065
     Dates: start: 20140401, end: 20140401
  36. ACETAMINOPHEN. [Concomitant]
     Active Substance: ACETAMINOPHEN
     Indication: ADVERSE EVENT
     Route: 048
     Dates: start: 20130103, end: 20130103
  37. LOXOPROFEN SODIUM HYDRATE [Concomitant]
     Active Substance: LOXOPROFEN SODIUM DIHYDRATE
     Indication: ADVERSE EVENT
     Route: 065
     Dates: start: 20130117, end: 20130201
  38. V ROHTO [Concomitant]
     Indication: ADVERSE EVENT
     Route: 047
     Dates: start: 20130510, end: 20130912
  39. SODIUM PICOSULFATE HYDRATE [Concomitant]
     Route: 065
     Dates: start: 20130403, end: 20140327
  40. ASPIRIN. [Concomitant]
     Active Substance: ASPIRIN
     Route: 065
     Dates: start: 20121211, end: 20130103
  41. L-CARBOCISTEINE [Concomitant]
     Active Substance: CARBOCYSTEINE
     Route: 065
     Dates: start: 20130822, end: 20130829
  42. SENNOSIDE [Concomitant]
     Active Substance: SENNOSIDES
     Indication: ADVERSE EVENT
     Route: 065
     Dates: start: 20121206, end: 20121206
  43. OSELTAMIVIR PHOSPHATE [Concomitant]
     Active Substance: OSELTAMIVIR PHOSPHATE
     Indication: ADVERSE EVENT
     Dosage: 150 MILLIGRAM
     Route: 048
     Dates: start: 20130103, end: 20130108
  44. EYE BON TORORI EYE-DROP (FOR EYE DISCHARGE) [Concomitant]
     Route: 047
  45. REVLIMID [Suspect]
     Active Substance: LENALIDOMIDE
     Dosage: 10 MILLIGRAM
     Route: 048
     Dates: start: 20121122
  46. LENADEX [Suspect]
     Active Substance: DEXAMETHASONE ACETATE
     Route: 048
  47. DEXAMETHASONE. [Suspect]
     Active Substance: DEXAMETHASONE
     Indication: PLASMA CELL MYELOMA
     Route: 041
     Dates: start: 20111222
  48. ELOTUZUMAB [Suspect]
     Active Substance: ELOTUZUMAB
     Indication: PLASMA CELL MYELOMA
     Dosage: 10 MILLIGRAM/SQ. METER
     Route: 041
     Dates: start: 20111222
  49. SULFAMETHOXAZOLE-TRIMETHOPRIM (SMZ) [Concomitant]
     Active Substance: SULFAMETHOXAZOLE\TRIMETHOPRIM
     Indication: PRODUCT USED FOR UNKNOWN INDICATION
     Route: 065
     Dates: start: 20111222
  50. SODIUM PICOSULFATE HYDRATE [Concomitant]
     Route: 065
     Dates: start: 20120601, end: 20130102
  51. ASPIRIN. [Concomitant]
     Active Substance: ASPIRIN
     Indication: PRODUCT USED FOR UNKNOWN INDICATION
     Route: 065
     Dates: start: 20111122, end: 20121129
  52. ASPIRIN. [Concomitant]
     Active Substance: ASPIRIN
     Route: 065
     Dates: start: 20130615, end: 20140326
  53. PL GRANULE [Concomitant]
     Route: 065
     Dates: start: 20130822, end: 20130829
  54. SOLITA-T NO 3 [Concomitant]
     Indication: ADVERSE EVENT
     Route: 065
     Dates: start: 20130402, end: 20130402
  55. EYE BON TORORI EYE-DROP (FOR EYE DISCHARGE) [Concomitant]
     Indication: ADVERSE EVENT
     Route: 047
     Dates: start: 20130913, end: 20131128
  56. ACICLOVIR [Concomitant]
     Active Substance: ACYCLOVIR
     Indication: PRODUCT USED FOR UNKNOWN INDICATION
     Route: 065
     Dates: start: 20111222
  57. SODIUM PICOSULFATE HYDRATE [Concomitant]
     Route: 065
     Dates: start: 20130122, end: 20130329
  58. ASPIRIN. [Concomitant]
     Active Substance: ASPIRIN
     Route: 065
     Dates: start: 20140402
  59. SENNOSIDE [Concomitant]
     Active Substance: SENNOSIDES
     Indication: PRODUCT USED FOR UNKNOWN INDICATION
     Route: 065
     Dates: start: 20121215, end: 20121215
  60. SENNA LEAF [Concomitant]
     Active Substance: SENNA LEAF
     Indication: ADVERSE EVENT
     Route: 065
     Dates: start: 20111226, end: 20111230
  61. SENNOSIDE [Concomitant]
     Active Substance: SENNOSIDES
     Route: 065
     Dates: start: 20130613, end: 20130613
  62. SENNOSIDE [Concomitant]
     Active Substance: SENNOSIDES
     Route: 065
     Dates: start: 20140331, end: 20140331
  63. LIRANAFTATE [Concomitant]
     Route: 065
     Dates: start: 20130809, end: 20130810

REACTIONS (2)
  - Pneumonia pneumococcal [Recovered/Resolved]
  - Colon cancer stage 0 [Recovered/Resolved]

NARRATIVE: CASE EVENT DATE: 20121212
